FAERS Safety Report 17632094 (Version 1)
Quarter: 2020Q2

REPORT INFORMATION
  Report Type: Spontaneous
  Country: US (occurrence: US)
  Receive Date: 20200401
  Receipt Date: 20200401
  Transmission Date: 20200713
  Serious: Yes (Other)
  Sender: FDA-Public Use
  Company Number: None

PATIENT
  Age: 61 Year
  Sex: Female
  Weight: 63.5 kg

DRUGS (1)
  1. RANITIDINE. [Suspect]
     Active Substance: RANITIDINE
     Indication: GASTROOESOPHAGEAL REFLUX DISEASE
     Dosage: 300MG 1 X DAY AT NIGHTIME BY MOUTH
     Route: 048
     Dates: start: 2017

REACTIONS (6)
  - Drug withdrawal syndrome [None]
  - Painful respiration [None]
  - Inability to afford medication [None]
  - Neoplasm malignant [None]
  - Chest pain [None]
  - Rash [None]

NARRATIVE: CASE EVENT DATE: 20191111
